FAERS Safety Report 9789277 (Version 3)
Quarter: 2014Q1

REPORT INFORMATION
  Report Type: Report from Study
  Country: CO (occurrence: CO)
  Receive Date: 20131230
  Receipt Date: 20140312
  Transmission Date: 20141002
  Serious: Yes (Hospitalization)
  Sender: FDA-Public Use
  Company Number: CO-ROCHE-1327259

PATIENT
  Age: 48 Year
  Sex: Male

DRUGS (2)
  1. RANIBIZUMAB [Suspect]
     Indication: MACULAR DEGENERATION
     Route: 050
     Dates: start: 201312
  2. METFORMIN [Concomitant]
     Indication: DIABETES MELLITUS
     Dosage: DAILY
     Route: 065

REACTIONS (1)
  - Thermal burn [Recovered/Resolved]
